FAERS Safety Report 6415101-6 (Version None)
Quarter: 2009Q4

REPORT INFORMATION
  Report Type: 
  Country: None (occurrence: None)
  Receive Date: 20091026
  Receipt Date: 20091019
  Transmission Date: 20100525
  Serious: Yes (Other)
  Sender: FDA-Public Use
  Company Number: AR-B.I. PHARMACEUTICALS,INC./RIDGEFIELD-2009-RA-00275RA

PATIENT
  Age: 31 Year
  Sex: Female

DRUGS (1)
  1. MOBIC [Suspect]
     Indication: BACK PAIN
     Dosage: 15 MG
     Route: 048
     Dates: start: 20081001, end: 20081001

REACTIONS (1)
  - BENIGN HYDATIDIFORM MOLE [None]
